FAERS Safety Report 24137433 (Version 1)
Quarter: 2024Q3

REPORT INFORMATION
  Report Type: Spontaneous
  Country: CA (occurrence: CA)
  Receive Date: 20240725
  Receipt Date: 20240725
  Transmission Date: 20241016
  Serious: Yes (Other)
  Sender: FRESENIUS KABI
  Company Number: CA-FreseniusKabi-FK202411245

PATIENT
  Age: 79 Year
  Sex: Female

DRUGS (2)
  1. FENTANYL [Suspect]
     Active Substance: FENTANYL\FENTANYL CITRATE
     Indication: Product used for unknown indication
     Dosage: FORM OF ADMIN-NOT SPECIFIED
     Route: 040
  2. MIDAZOLAM [Concomitant]
     Active Substance: MIDAZOLAM
     Indication: Product used for unknown indication

REACTIONS (6)
  - Glassy eyes [Unknown]
  - Hypotension [Unknown]
  - Incontinence [Unknown]
  - Oxygen saturation decreased [Unknown]
  - Pulse abnormal [Unknown]
  - Unresponsive to stimuli [Unknown]
